FAERS Safety Report 6320794-8 (Version None)
Quarter: 2009Q3

REPORT INFORMATION
  Report Type: 
  Country: None (occurrence: None)
  Receive Date: 20090822
  Receipt Date: 20081208
  Transmission Date: 20100115
  Serious: No
  Sender: FDA-Public Use
  Company Number: US-ABBOTT-08P-163-0491537-00

PATIENT
  Sex: Female
  Weight: 91.708 kg

DRUGS (8)
  1. NIASPAN [Suspect]
     Indication: DRUG USE FOR UNKNOWN INDICATION
     Route: 048
     Dates: start: 20081204
  2. SUBOXONE [Concomitant]
     Indication: DRUG DEPENDENCE
     Route: 060
  3. LANSOPRAZOLE [Concomitant]
     Indication: GASTROOESOPHAGEAL REFLUX DISEASE
     Route: 048
  4. PRISTIQ [Concomitant]
     Indication: ANTIDEPRESSANT THERAPY
     Route: 048
  5. CHROMIUM PICOLINATE [Concomitant]
     Indication: DRUG USE FOR UNKNOWN INDICATION
     Route: 048
  6. WOMEN'S DAILY VITAMIN [Concomitant]
     Indication: VITAMIN SUPPLEMENTATION
     Route: 048
  7. ASPIRIN [Concomitant]
     Indication: HOT FLUSH
     Route: 048
  8. WOMEN'S WELLNESS PRE-MENSTRUAL [Concomitant]
     Indication: DRUG USE FOR UNKNOWN INDICATION

REACTIONS (3)
  - ERYTHEMA [None]
  - FLUSHING [None]
  - PRURITUS [None]
